FAERS Safety Report 7332245-5 (Version None)
Quarter: 2011Q1

REPORT INFORMATION
  Report Type: 
  Country: None (occurrence: None)
  Receive Date: 20110304
  Receipt Date: 20110224
  Transmission Date: 20110831
  Serious: Yes (Hospitalization)
  Sender: FDA-Public Use
  Company Number: US-JNJFOC-20110208734

PATIENT
  Sex: Male

DRUGS (16)
  1. XANAX [Concomitant]
     Indication: ANXIETY
     Dosage: AS NEEDED
     Route: 048
  2. DURAGESIC-50 [Suspect]
     Indication: PAIN
     Route: 062
  3. DURAGESIC-50 [Suspect]
     Route: 062
  4. LIDODERM [Concomitant]
     Indication: ARTHRALGIA
     Route: 062
  5. DURAGESIC-50 [Suspect]
     Route: 062
  6. CYMBALTA [Concomitant]
     Indication: NEURALGIA
     Dosage: IN THE P.M
     Route: 048
  7. XANAX [Concomitant]
     Dosage: AS NEEDED
     Route: 048
  8. XANAX [Concomitant]
     Indication: PANIC ATTACK
     Route: 048
  9. ACCUPRIL [Concomitant]
     Indication: HYPERTENSION
     Route: 048
  10. CYMBALTA [Concomitant]
     Indication: DEPRESSION
     Dosage: IN THE P.M
     Route: 048
  11. FENTANYL CITRATE [Suspect]
     Indication: PAIN
     Route: 062
  12. CYMBALTA [Concomitant]
     Dosage: IN THE A.M
     Route: 048
  13. HYDROCODONE BITARTRATE [Concomitant]
     Indication: BREAKTHROUGH PAIN
     Dosage: AS NEEDED
     Route: 048
  14. HYDROCODONE BITARTRATE [Concomitant]
     Dosage: AS NEEDED
     Route: 048
  15. CYMBALTA [Concomitant]
     Dosage: IN THE A.M
     Route: 048
  16. XANAX [Concomitant]
     Route: 048

REACTIONS (4)
  - WITHDRAWAL SYNDROME [None]
  - INADEQUATE ANALGESIA [None]
  - PAIN IN EXTREMITY [None]
  - NERVE INJURY [None]
